FAERS Safety Report 8940313 (Version 1)
Quarter: 2012Q4

REPORT INFORMATION
  Report Type: 
  Country: US (occurrence: US)
  Receive Date: 20121121
  Receipt Date: 20121121
  Transmission Date: 20130627
  Serious: Yes (Death)
  Sender: FDA-Public Use
  Company Number: US-ASTELLAS-1111774

PATIENT
  Sex: Male

DRUGS (2)
  1. TARCEVA [Suspect]
     Indication: MALIGNANT RESPIRATORY TRACT NEOPLASM
     Route: 065
  2. TARCEVA [Suspect]
     Dosage: half pill
     Route: 065
     Dates: end: 20050829

REACTIONS (4)
  - Death [Fatal]
  - Rash [Unknown]
  - Diarrhoea [Unknown]
  - Vomiting [Unknown]
